FAERS Safety Report 7931086-5 (Version None)
Quarter: 2011Q4

REPORT INFORMATION
  Report Type: 
  Country: None (occurrence: None)
  Receive Date: 20111121
  Receipt Date: 20111116
  Transmission Date: 20120403
  Serious: Yes (Other)
  Sender: FDA-Public Use
  Company Number: US-COVIDIEN/TYCO HEALTHCARE/MALLINCKRODT-T201102649

PATIENT
  Sex: Male

DRUGS (2)
  1. PROPOXYPHENE HYDROCHLORIDE [Suspect]
     Dosage: UNK
     Dates: start: 20081020, end: 20101201
  2. PROPOXYPHENE HCL AND ACETAMINOPHEN [Suspect]
     Dosage: UNK
     Dates: start: 20060420

REACTIONS (1)
  - CARDIAC DISORDER [None]
